FAERS Safety Report 24358159 (Version 1)
Quarter: 2024Q3

REPORT INFORMATION
  Report Type: Spontaneous
  Country: US (occurrence: None)
  Receive Date: 20240924
  Receipt Date: 20240924
  Transmission Date: 20241017
  Serious: No
  Sender: Public
  Company Number: None

PATIENT
  Age: 76 Year
  Sex: Female

DRUGS (1)
  1. ADBRY [Suspect]
     Active Substance: TRALOKINUMAB-LDRM
     Indication: Neurodermatitis
     Dosage: FREQUENCY : EVERY OTHER WEEK;?;INJECT 600 MG ( 4 SYRINGES) SUBCUTANEOUSLY ON DAY 1, THEN 300 MG (2 S
     Route: 058
     Dates: start: 202401

REACTIONS (1)
  - Cataract operation [None]
